FAERS Safety Report 24066821 (Version 1)
Quarter: 2024Q3

REPORT INFORMATION
  Report Type: Other
  Country: US (occurrence: US)
  Receive Date: 20240709
  Receipt Date: 20240709
  Transmission Date: 20241016
  Serious: Yes (Other)
  Sender: HLS THERAPEUTICS
  Company Number: US-HLS-202400185

PATIENT
  Age: 36 Year
  Sex: Male

DRUGS (3)
  1. CLOZAPINE [Suspect]
     Active Substance: CLOZAPINE
     Indication: Schizophrenia
     Dosage: INCREASED FROM 300 MG TO 600 MG PER DAY / 25 MG REDUCTION IN THE DOSE OF CLOZAPINE
     Route: 065
  2. VALPROATE SODIUM [Suspect]
     Active Substance: VALPROATE SODIUM
     Indication: Schizophrenia
     Dosage: 1 GM/DAY
     Route: 065
  3. CARIPRAZINE [Suspect]
     Active Substance: CARIPRAZINE
     Indication: Schizophrenia
     Dosage: 3 MG/DAY
     Route: 065
     Dates: start: 202212

REACTIONS (7)
  - Aggression [Recovering/Resolving]
  - Hallucination, auditory [Recovering/Resolving]
  - Constipation [Recovering/Resolving]
  - Delusion [Recovering/Resolving]
  - Drug effect less than expected [Unknown]
  - Sedation [Recovering/Resolving]
  - Salivary hypersecretion [Recovering/Resolving]
